FAERS Safety Report 20301648 (Version 2)
Quarter: 2022Q1

REPORT INFORMATION
  Report Type: Spontaneous
  Country: PL (occurrence: PL)
  Receive Date: 20220105
  Receipt Date: 20220118
  Transmission Date: 20220423
  Serious: Yes (Hospitalization)
  Sender: FDA-Public Use
  Company Number: PL-PFM-2021-12482

PATIENT
  Age: 75 Year
  Sex: Female

DRUGS (2)
  1. CARBOPLATIN [Suspect]
     Active Substance: CARBOPLATIN
     Indication: Adenocarcinoma
     Dosage: UNK UNK, CYCLIC
     Route: 065
     Dates: start: 20200630, end: 202008
  2. VINORELBINE [Suspect]
     Active Substance: VINORELBINE TARTRATE
     Indication: Adenocarcinoma
     Dosage: UNK UNK, CYCLIC
     Route: 065
     Dates: start: 20200630, end: 202008

REACTIONS (2)
  - Radiation oesophagitis [Recovering/Resolving]
  - Asthenia [Recovering/Resolving]
